FAERS Safety Report 20739432 (Version 1)
Quarter: 2022Q2

REPORT INFORMATION
  Report Type: Spontaneous
  Country: GB (occurrence: GB)
  Receive Date: 20220422
  Receipt Date: 20220422
  Transmission Date: 20220720
  Serious: Yes (Other)
  Sender: FDA-Public Use
  Company Number: None

PATIENT
  Age: 86 Year
  Sex: Male
  Weight: 100 kg

DRUGS (13)
  1. UMECLIDINIUM BROMIDE\VILANTEROL TRIFENATATE [Suspect]
     Active Substance: UMECLIDINIUM BROMIDE\VILANTEROL TRIFENATATE
     Indication: Ill-defined disorder
     Dosage: UNK UNK, QD INHALE ONE DOSE ONCE DAILY
     Route: 055
     Dates: start: 20210930, end: 20211014
  2. UMECLIDINIUM BROMIDE\VILANTEROL TRIFENATATE [Suspect]
     Active Substance: UMECLIDINIUM BROMIDE\VILANTEROL TRIFENATATE
     Dosage: 1 DF, QD (55MICROGRAMS/DOSE / 22MICROGRAMS/DOSE)
     Route: 055
     Dates: start: 20210930
  3. ATORVASTATIN [Concomitant]
     Active Substance: ATORVASTATIN
     Indication: Ill-defined disorder
     Dosage: 1 DF, QD
     Route: 065
     Dates: start: 20210324
  4. CLOPIDOGREL [Concomitant]
     Active Substance: CLOPIDOGREL BISULFATE
     Indication: Ill-defined disorder
     Dosage: 1 DF, QD
     Route: 065
     Dates: start: 20210324
  5. DICLOFENAC SODIUM [Concomitant]
     Active Substance: DICLOFENAC SODIUM
     Indication: Ill-defined disorder
     Dosage: 1 DF, BID
     Route: 065
     Dates: start: 20210909, end: 20211009
  6. FLUAD TETRA [Concomitant]
     Indication: Influenza immunisation
     Dosage: UNK
     Route: 065
     Dates: start: 20211005, end: 20211006
  7. FUROSEMIDE [Concomitant]
     Active Substance: FUROSEMIDE
     Indication: Ill-defined disorder
     Dosage: 1 DF, QD TAKE ONE EACH MORNING
     Route: 065
     Dates: start: 20210721, end: 20211006
  8. LANSOPRAZOLE [Concomitant]
     Active Substance: LANSOPRAZOLE
     Indication: Ill-defined disorder
     Dosage: 1 DF, QD TAKE ONE ONCE DAILY
     Route: 065
     Dates: start: 20210324
  9. LISINOPRIL [Concomitant]
     Active Substance: LISINOPRIL
     Indication: Ill-defined disorder
     Dosage: 1 DF, QD, TAKE ONE DAILY
     Route: 065
     Dates: start: 20210324
  10. PREDNISOLONE [Concomitant]
     Active Substance: PREDNISOLONE
     Indication: Ill-defined disorder
     Dosage: 6 DF, QD (UNK,QD, SIX TO BE TAKEN ONCE DAILY FOR FIVE DAYS)
     Route: 065
     Dates: start: 20210930, end: 20211005
  11. ALBUTEROL [Concomitant]
     Active Substance: ALBUTEROL
     Indication: Ill-defined disorder
     Dosage: 2 DF, BID (UNK, BID, INHALE 2 DOSES AS NEEDED)
     Route: 055
     Dates: start: 20181120
  12. ZOPICLONE [Concomitant]
     Active Substance: ZOPICLONE
     Indication: Ill-defined disorder
     Dosage: UNK, QD, TAKE ONE AT NIGHT  ON ALTERNATE NIGHTS
     Route: 065
     Dates: start: 20170213, end: 20210721
  13. POLYETHYLENE GLYCOL 3350\POTASSIUM CHLORIDE\SODIUM BICARBONATE\SODIUM [Concomitant]
     Active Substance: POLYETHYLENE GLYCOL 3350\POTASSIUM CHLORIDE\SODIUM BICARBONATE\SODIUM CHLORIDE
     Indication: Ill-defined disorder
     Dosage: 1 DF, BID (DOSAGE TEXT TAKE ONE SACHET TWICE DAILY)
     Route: 065
     Dates: start: 20210127

REACTIONS (1)
  - Angioedema [Unknown]
